FAERS Safety Report 7805790-3 (Version None)
Quarter: 2011Q4

REPORT INFORMATION
  Report Type: 
  Country: None (occurrence: None)
  Receive Date: 20111011
  Receipt Date: 20110930
  Transmission Date: 20120403
  Serious: No
  Sender: FDA-Public Use
  Company Number: US-BIOGENIDEC-2011BI037852

PATIENT
  Age: 53 Year
  Sex: Female

DRUGS (3)
  1. COPAXONE [Concomitant]
     Indication: MULTIPLE SCLEROSIS
  2. TYSABRI [Suspect]
     Route: 042
     Dates: start: 20070821, end: 20110315
  3. TYSABRI [Suspect]
     Indication: MULTIPLE SCLEROSIS
     Route: 042
     Dates: start: 20110916

REACTIONS (2)
  - GAIT DISTURBANCE [None]
  - MUSCULOSKELETAL DISORDER [None]
